FAERS Safety Report 7148178-3 (Version None)
Quarter: 2010Q4

REPORT INFORMATION
  Report Type: 
  Country: None (occurrence: None)
  Receive Date: 20101209
  Receipt Date: 20101124
  Transmission Date: 20110411
  Serious: No
  Sender: FDA-Public Use
  Company Number: US-B.I. PHARMACEUTICALS,INC./RIDGEFIELD-2010-BP-13290BP

PATIENT
  Age: 53 Year
  Sex: Male

DRUGS (7)
  1. PRADAXA [Suspect]
     Indication: ATRIAL FIBRILLATION
     Dosage: 300 MG
     Route: 048
     Dates: start: 20101119
  2. PROPRANOLOL [Concomitant]
     Indication: HYPERTENSION
     Dosage: 120 MG
  3. ZOLPIDEM [Concomitant]
     Indication: INSOMNIA
     Dosage: 10 MG
  4. ASPIRIN [Concomitant]
     Indication: ATRIAL FIBRILLATION
     Dosage: 80 MG
  5. PRAVASTATIN [Concomitant]
     Indication: BLOOD CHOLESTEROL INCREASED
  6. METOPROLOL [Concomitant]
     Indication: HYPERTENSION
  7. PLAVIX [Concomitant]
     Indication: ATRIAL FIBRILLATION

REACTIONS (2)
  - AGITATION [None]
  - MOOD SWINGS [None]
